FAERS Safety Report 17883362 (Version 1)
Quarter: 2020Q2

REPORT INFORMATION
  Report Type: Other
  Country: CA (occurrence: CA)
  Receive Date: 20200611
  Receipt Date: 20200611
  Transmission Date: 20200714
  Serious: Yes (Other)
  Sender: FDA-Public Use
  Company Number: CA-LUPIN PHARMACEUTICALS INC.-2020-02757

PATIENT
  Sex: Female

DRUGS (1)
  1. NORETHINDRONE. [Suspect]
     Active Substance: NORETHINDRONE
     Indication: PRODUCT USED FOR UNKNOWN INDICATION
     Dosage: 0.35 MILLIGRAM, QD (EVERY 1 DAYS)
     Route: 048

REACTIONS (1)
  - Colitis ulcerative [Recovered/Resolved]
